FAERS Safety Report 11328123 (Version 1)
Quarter: 2015Q3

REPORT INFORMATION
  Report Type: Spontaneous
  Country: JP (occurrence: JP)
  Receive Date: 20150731
  Receipt Date: 20150731
  Transmission Date: 20151125
  Serious: Yes (Other)
  Sender: FDA-Public Use
  Company Number: JP-FRESENIUS KABI-FK201503698

PATIENT

DRUGS (4)
  1. MESNA (MANUFACTURER UNKNOWN) [Suspect]
     Active Substance: MESNA
     Indication: BONE MARROW CONDITIONING REGIMEN
     Route: 042
  2. CYCLOPHOSPHAMIDE (MANUFACTURER UNKNOWN) [Suspect]
     Active Substance: CYCLOPHOSPHAMIDE
     Indication: BONE MARROW CONDITIONING REGIMEN
     Route: 065
  3. RANIMUSTINE [Suspect]
     Active Substance: RANIMUSTINE
     Indication: BONE MARROW CONDITIONING REGIMEN
  4. ETOPOSIDE. [Suspect]
     Active Substance: ETOPOSIDE
     Indication: BONE MARROW CONDITIONING REGIMEN

REACTIONS (3)
  - Second primary malignancy [None]
  - Myelodysplastic syndrome [Unknown]
  - Refractory cytopenia with unilineage dysplasia [None]
